FAERS Safety Report 8378305-1 (Version None)
Quarter: 2012Q2

REPORT INFORMATION
  Report Type: 
  Country: None (occurrence: None)
  Receive Date: 20120521
  Receipt Date: 20120504
  Transmission Date: 20120825
  Serious: Yes (Hospitalization, Other)
  Sender: FDA-Public Use
  Company Number: 2012P1025691

PATIENT
  Age: 81 Year
  Sex: Female

DRUGS (13)
  1. LOVENOX [Concomitant]
  2. LASIX [Concomitant]
  3. DETENSTEL [Concomitant]
  4. FLECAINIDE ACETATE [Concomitant]
  5. RABEPRAZOLE SODIUM [Concomitant]
  6. PREVASTATINE [Concomitant]
  7. FUNAPER [Concomitant]
  8. CEFTAZIDIME [Suspect]
     Indication: URINARY TRACT INFECTION
     Dosage: 5 GM; ; IV
     Route: 042
     Dates: start: 20120131, end: 20120203
  9. PERINDOPRIL ERBUMINE [Concomitant]
  10. PREVISCAN (NO PREF. NAME) [Suspect]
     Indication: PHLEBITIS
     Dosage: ;PO
     Route: 048
     Dates: start: 20120131, end: 20120205
  11. NEO-MERCAZOLE TAB [Concomitant]
  12. CIPRO [Suspect]
     Indication: URINARY TRACT INFECTION
     Dosage: 500 MG; BID; PO
     Route: 048
     Dates: start: 20120131, end: 20120207
  13. PLAVIX [Concomitant]

REACTIONS (7)
  - ANAEMIA [None]
  - PHLEBITIS [None]
  - MELAENA [None]
  - RECTAL HAEMORRHAGE [None]
  - INTERNATIONAL NORMALISED RATIO INCREASED [None]
  - HAEMOPTYSIS [None]
  - DRUG INTERACTION [None]
